FAERS Safety Report 11106193 (Version 1)
Quarter: 2015Q2

REPORT INFORMATION
  Report Type: Spontaneous
  Country: US (occurrence: US)
  Receive Date: 20150512
  Receipt Date: 20150512
  Transmission Date: 20150821
  Serious: Yes (Other)
  Sender: FDA-Public Use
  Company Number: US-BEH-2013037528

PATIENT
  Age: 13 Year
  Sex: Female

DRUGS (2)
  1. IVIG [Suspect]
     Active Substance: HUMAN IMMUNOGLOBULIN G
     Indication: ANTISYNTHETASE SYNDROME
  2. IVIG [Suspect]
     Active Substance: HUMAN IMMUNOGLOBULIN G
     Indication: ANTISYNTHETASE SYNDROME

REACTIONS (4)
  - Interstitial lung disease [Unknown]
  - Antisynthetase syndrome [Unknown]
  - Antinuclear antibody positive [Unknown]
  - Drug ineffective for unapproved indication [Unknown]
